FAERS Safety Report 7962026-0 (Version None)
Quarter: 2011Q4

REPORT INFORMATION
  Report Type: 
  Country: None (occurrence: None)
  Receive Date: 20111121
  Receipt Date: 20110919
  Transmission Date: 20120403
  Serious: No
  Sender: FDA-Public Use
  Company Number: 1000024023

PATIENT
  Age: 53 Year
  Sex: Female

DRUGS (6)
  1. RISPERIDONE [Concomitant]
  2. VIIBRYD [Suspect]
     Indication: DEPRESSION
     Dosage: 40 (40 MG, 1 IN 1 D), ORAL
     Route: 048
     Dates: start: 20110911, end: 20110917
  3. IBUPROFEN [Concomitant]
  4. EFFEXOR [Concomitant]
  5. VIIBRYD [Suspect]
     Indication: DEPRESSION
     Dosage: 10 MG, (10 MG, 1 IN 1 D), ORAL; 20 MG (20 MG, 1 IN 1 D), ORAL
     Route: 048
     Dates: start: 20110904, end: 20110910
  6. VIIBRYD [Suspect]
     Indication: DEPRESSION
     Dosage: 10 MG, (10 MG, 1 IN 1 D), ORAL; 20 MG (20 MG, 1 IN 1 D), ORAL
     Route: 048
     Dates: start: 20110828, end: 20110903

REACTIONS (6)
  - PARAESTHESIA [None]
  - SOMNOLENCE [None]
  - FATIGUE [None]
  - MALAISE [None]
  - HEADACHE [None]
  - CONFUSIONAL STATE [None]
